FAERS Safety Report 6463351-5 (Version None)
Quarter: 2009Q4

REPORT INFORMATION
  Report Type: 
  Country: None (occurrence: None)
  Receive Date: 20091130
  Receipt Date: 20090730
  Transmission Date: 20100525
  Serious: Yes (Other)
  Sender: FDA-Public Use
  Company Number: US-AMGEN-QUU349475

PATIENT
  Sex: Female
  Weight: 64.9 kg

DRUGS (4)
  1. ENBREL [Suspect]
     Indication: RHEUMATOID ARTHRITIS
     Route: 058
     Dates: start: 20090406, end: 20090601
  2. SULFASALAZINE [Concomitant]
     Route: 048
  3. PLAQUENIL [Concomitant]
     Route: 048
  4. METHOTREXATE [Concomitant]
     Route: 058

REACTIONS (6)
  - CHRONIC OBSTRUCTIVE PULMONARY DISEASE [None]
  - COUGH [None]
  - HEADACHE [None]
  - PULMONARY CONGESTION [None]
  - PYREXIA [None]
  - UPPER RESPIRATORY TRACT INFECTION [None]
